FAERS Safety Report 5939591-8 (Version None)
Quarter: 2008Q4

REPORT INFORMATION
  Report Type: 
  Country: None (occurrence: None)
  Receive Date: 20081030
  Receipt Date: 20081024
  Transmission Date: 20090506
  Serious: Yes (Death)
  Sender: FDA-Public Use
  Company Number: 2008S1000387

PATIENT
  Age: 88 Year
  Sex: Male
  Weight: 44.9 kg

DRUGS (2)
  1. CUBICIN [Suspect]
     Indication: ENDOCARDITIS
     Dosage: 4 MG/KG;Q24H;IV
     Route: 042
     Dates: start: 20081024, end: 20081024
  2. VANCOMYCIN [Concomitant]

REACTIONS (1)
  - PNEUMONIA [None]
